FAERS Safety Report 23054831 (Version 1)
Quarter: 2023Q4

REPORT INFORMATION
  Report Type: Spontaneous
  Country: US (occurrence: None)
  Receive Date: 20231010
  Receipt Date: 20231010
  Transmission Date: 20240110
  Serious: Yes (Other)
  Sender: FDA-Public Use
  Company Number: None

PATIENT
  Age: 73 Year
  Sex: Male
  Weight: 69.39 kg

DRUGS (12)
  1. REVLIMID [Suspect]
     Active Substance: LENALIDOMIDE
     Indication: Plasma cell myeloma
     Dosage: FREQUENCY : DAILY;?
     Route: 048
     Dates: start: 20230811
  2. Cipro 250 mg tablet [Concomitant]
  3. dexamethasone 20 mg tablet [Concomitant]
  4. Calcium 500 500 mg calcium (1,250 mg) chewable tablet [Concomitant]
  5. Centrum Silver 0.4 mg-300 mcg-250 mcg tablet [Concomitant]
  6. Omega-3 350 mg-235 mg-90 mg-597 mg capsule,delayed release [Concomitant]
  7. turmeric 400 mg capsule [Concomitant]
  8. Vitamin C 1,000 mg tablet [Concomitant]
  9. Vitamin D3 25 mcg (1,000 unit) tablet [Concomitant]
  10. ATENOLOL [Concomitant]
     Active Substance: ATENOLOL
  11. LISINOPRIL [Concomitant]
     Active Substance: LISINOPRIL
  12. AMLODIPINE [Concomitant]
     Active Substance: AMLODIPINE BESYLATE

REACTIONS (1)
  - Rash [None]

NARRATIVE: CASE EVENT DATE: 20231009
